FAERS Safety Report 24136895 (Version 2)
Quarter: 2024Q3

REPORT INFORMATION
  Report Type: Report from Study
  Country: US (occurrence: US)
  Receive Date: 20240725
  Receipt Date: 20240802
  Transmission Date: 20241016
  Serious: Yes (Death, Other)
  Sender: BAYER
  Company Number: US-BAYER-2024A106769

PATIENT
  Age: 63 Year
  Sex: Male

DRUGS (18)
  1. ADEMPAS [Suspect]
     Active Substance: RIOCIGUAT
     Indication: Pulmonary arterial hypertension
     Dosage: UNK
  2. ADEMPAS [Suspect]
     Active Substance: RIOCIGUAT
     Indication: Pulmonary arterial hypertension
     Dosage: 2.5 MG, TID
     Route: 048
     Dates: start: 201907
  3. AZATHIOPRINE [Concomitant]
     Active Substance: AZATHIOPRINE
  4. AMBRISENTAN [Concomitant]
     Active Substance: AMBRISENTAN
  5. TYVASO DPI [Concomitant]
     Active Substance: TREPROSTINIL
     Dosage: 80 ?G, QID
  6. OFEV [Concomitant]
     Active Substance: NINTEDANIB
     Indication: Interstitial lung disease
     Dosage: 100 MG, BID
     Route: 048
  7. METFORMIN [Concomitant]
     Active Substance: METFORMIN HYDROCHLORIDE
  8. Lotaris [Concomitant]
     Dosage: 10 MG
  9. IMURAN [Concomitant]
     Active Substance: AZATHIOPRINE
     Dosage: 150 MG
  10. IMURAN [Concomitant]
     Active Substance: AZATHIOPRINE
     Dosage: 100 MG, QD
  11. IMURAN [Concomitant]
     Active Substance: AZATHIOPRINE
     Dosage: 100 MG, BID
  12. LETAIRIS [Concomitant]
     Active Substance: AMBRISENTAN
     Dosage: 10 MG, QD
  13. ERGOCALCIFEROL [Concomitant]
     Active Substance: ERGOCALCIFEROL
     Dosage: 1250 ?G
  14. FUROSEMIDE [Concomitant]
     Active Substance: FUROSEMIDE
     Dosage: 20 MG, QD
     Route: 048
  15. MIDODRINE [Concomitant]
     Active Substance: MIDODRINE
     Dosage: 10 MG, QD
     Route: 048
  16. SPIRIVA [Concomitant]
     Active Substance: TIOTROPIUM BROMIDE MONOHYDRATE
     Dosage: 18 ?G
  17. NINTEDANIB [Concomitant]
     Active Substance: NINTEDANIB
     Dosage: 100 MG, BID
     Dates: start: 202310
  18. LASIX [Concomitant]
     Active Substance: FUROSEMIDE
     Dosage: 20 MG

REACTIONS (21)
  - Death [Fatal]
  - Bronchiectasis [None]
  - Obliterative bronchiolitis [None]
  - Granuloma [None]
  - Arteriosclerosis coronary artery [None]
  - Aortic stenosis [None]
  - Interstitial lung disease [None]
  - Pulmonary fibrosis [None]
  - Emphysema [None]
  - Oxygen saturation decreased [None]
  - Respiratory symptom [None]
  - Blood creatinine increased [None]
  - Dyspnoea [Not Recovered/Not Resolved]
  - Hypersomnia [None]
  - Dyspnoea exertional [None]
  - Cough [None]
  - Lung opacity [None]
  - Splenomegaly [None]
  - Calcification metastatic [None]
  - Lymphadenopathy [None]
  - Skin mass [None]

NARRATIVE: CASE EVENT DATE: 20240716
